FAERS Safety Report 11218690 (Version 1)
Quarter: 2015Q2

REPORT INFORMATION
  Report Type: Spontaneous
  Country: DE (occurrence: DE)
  Receive Date: 20150625
  Receipt Date: 20150625
  Transmission Date: 20150821
  Serious: Yes (Other)
  Sender: FDA-Public Use
  Company Number: PHHY2015DE076161

PATIENT
  Age: 39 Year
  Sex: Male

DRUGS (10)
  1. FLUVASTATIN [Interacting]
     Active Substance: FLUVASTATIN SODIUM
     Indication: DYSLIPIDAEMIA
     Dosage: 40 MG, QD
     Route: 065
     Dates: start: 20070226
  2. FLUVASTATIN [Interacting]
     Active Substance: FLUVASTATIN SODIUM
     Dosage: 40 MG, QD
     Route: 065
     Dates: start: 20080307
  3. FLUVASTATIN [Interacting]
     Active Substance: FLUVASTATIN SODIUM
     Dosage: 40 MG,QD
     Route: 065
     Dates: start: 20091118
  4. TELMISARTAN. [Interacting]
     Active Substance: TELMISARTAN
  5. FLUVASTATIN [Interacting]
     Active Substance: FLUVASTATIN SODIUM
     Dosage: 40 MG, QD
     Dates: start: 20081017
  6. TELMISARTAN. [Suspect]
     Active Substance: TELMISARTAN
     Indication: HYPERTENSION
     Dosage: 20 MG,QD
     Route: 065
     Dates: start: 200809
  7. FLUVASTATIN [Interacting]
     Active Substance: FLUVASTATIN SODIUM
     Dosage: 40 MG, QD
     Route: 065
     Dates: start: 20080627
  8. FLUVASTATIN [Interacting]
     Active Substance: FLUVASTATIN SODIUM
     Dosage: 40 MG, QD
     Route: 065
     Dates: start: 20081022
  9. FLUVASTATIN [Interacting]
     Active Substance: FLUVASTATIN SODIUM
     Dosage: 40 MG,QD
     Route: 065
     Dates: start: 20070521
  10. FLUVASTATIN [Interacting]
     Active Substance: FLUVASTATIN SODIUM
     Dosage: 40 MG, QD
     Route: 065
     Dates: start: 20071122

REACTIONS (5)
  - Myalgia [Recovered/Resolved]
  - Muscle contractions involuntary [Recovered/Resolved]
  - Blood creatine phosphokinase increased [Recovered/Resolved]
  - Drug interaction [Unknown]
  - Muscle spasms [Recovered/Resolved]
